FAERS Safety Report 25609501 (Version 2)
Quarter: 2025Q3

REPORT INFORMATION
  Report Type: Spontaneous
  Country: US (occurrence: US)
  Receive Date: 20250727
  Receipt Date: 20250729
  Transmission Date: 20251021
  Serious: No
  Sender: ABBVIE
  Company Number: US-ABBVIE-6384630

PATIENT
  Age: 33 Year
  Sex: Male

DRUGS (1)
  1. UPADACITINIB [Suspect]
     Active Substance: UPADACITINIB
     Indication: Pouchitis
     Route: 048
     Dates: start: 20250705

REACTIONS (2)
  - Product residue present [Unknown]
  - Off label use [Unknown]

NARRATIVE: CASE EVENT DATE: 20250101
